FAERS Safety Report 5585287-4 (Version None)
Quarter: 2008Q1

REPORT INFORMATION
  Report Type: 
  Country: None (occurrence: None)
  Receive Date: 20080104
  Receipt Date: 20080104
  Transmission Date: 20080703
  Serious: Yes (Hospitalization)
  Sender: FDA-Public Use
  Company Number: None

PATIENT
  Sex: Male
  Weight: 95 kg

DRUGS (5)
  1. CYCLOPHOSPHAMIDE [Suspect]
     Dosage: 1630 MG
  2. DOXORUBICIN HYDROCHLORIDE [Suspect]
     Dosage: 110 MG
  3. PREDNISONE TAB [Suspect]
     Dosage: 400 MG
  4. RITUXIMAB (MOAB C2B8 ANTI CD20,CHIMERIC) [Suspect]
  5. VINCRISTINE [Suspect]
     Dosage: 2 MG

REACTIONS (3)
  - BODY TEMPERATURE INCREASED [None]
  - CHILLS [None]
  - NEUTROPHIL COUNT DECREASED [None]
